FAERS Safety Report 20455615 (Version 4)
Quarter: 2022Q4

REPORT INFORMATION
  Report Type: Spontaneous
  Country: PR (occurrence: PR)
  Receive Date: 20220210
  Receipt Date: 20221206
  Transmission Date: 20230113
  Serious: No
  Sender: FDA-Public Use
  Company Number: PR-PFIZER INC-202101609390

PATIENT
  Age: 56 Year
  Sex: Female

DRUGS (10)
  1. IBRANCE [Suspect]
     Active Substance: PALBOCICLIB
     Indication: Breast cancer
     Dosage: 125 MG, CYCLIC (QDX21D)
     Route: 048
     Dates: start: 20210916, end: 20221128
  2. VITAMIN C [Concomitant]
     Active Substance: ASCORBIC ACID
     Dosage: UNK
  3. VITAMIN D NOS [Concomitant]
     Active Substance: VITAMIN D NOS
     Dosage: UNK
  4. MOBIC [Concomitant]
     Active Substance: MELOXICAM
     Dosage: 7.5 MG
  5. LIDOCAINE [Concomitant]
     Active Substance: LIDOCAINE
     Dosage: UNK
  6. LIDOCAINE [Concomitant]
     Active Substance: LIDOCAINE
     Dosage: UNK
  7. NEURONTIN [Concomitant]
     Active Substance: GABAPENTIN
     Dosage: 100 MG
  8. IRON\VITAMIN B [Concomitant]
     Active Substance: IRON\VITAMIN B
     Dosage: UNK
  9. ACETAMINOPHEN\CHLORZOXAZONE [Concomitant]
     Active Substance: ACETAMINOPHEN\CHLORZOXAZONE
     Dosage: 800 MG
  10. ZINC [Concomitant]
     Active Substance: ZINC
     Dosage: 30 MG

REACTIONS (4)
  - Neoplasm progression [Unknown]
  - Haematology test abnormal [Unknown]
  - Fatigue [Unknown]
  - Haemoglobin decreased [Unknown]

NARRATIVE: CASE EVENT DATE: 20210101
